FAERS Safety Report 14956658 (Version 1)
Quarter: 2018Q2

REPORT INFORMATION
  Report Type: Spontaneous
  Country: US (occurrence: US)
  Receive Date: 20180531
  Receipt Date: 20180531
  Transmission Date: 20180711
  Serious: No
  Sender: FDA-Public Use
  Company Number: US-NOVEN PHARMACEUTICALS, INC.-US2017001114

PATIENT

DRUGS (9)
  1. ZONISAMIDE. [Concomitant]
     Active Substance: ZONISAMIDE
     Indication: EPILEPSY
     Dosage: 3 TABLET OF 25 MG IN THE MORNING AND 4 TABLETS OF 25 IN THE EVENING, BID
     Dates: start: 201705
  2. DAYTRANA [Suspect]
     Active Substance: METHYLPHENIDATE
     Indication: ATTENTION DEFICIT/HYPERACTIVITY DISORDER
     Dosage: 10 MG, UNKNOWN
     Route: 062
     Dates: start: 2017
  3. DAYTRANA [Suspect]
     Active Substance: METHYLPHENIDATE
     Dosage: CUTTING 15 MG INTO HALF TO GET 7.5 MG DOSE, UNKNOWN
     Route: 062
     Dates: start: 2017, end: 2017
  4. DAYTRANA [Suspect]
     Active Substance: METHYLPHENIDATE
     Dosage: 10 MG, UNK
     Route: 062
     Dates: start: 2017, end: 2017
  5. DAYTRANA [Suspect]
     Active Substance: METHYLPHENIDATE
     Dosage: 15 MG, UNKNOWN
     Route: 062
  6. ZONISAMIDE. [Concomitant]
     Active Substance: ZONISAMIDE
     Dosage: 2 TABLET IN THE MORNING AND 2 TABLETS IN THE EVENING
  7. VITAMIN B6 [Concomitant]
     Active Substance: PYRIDOXINE HYDROCHLORIDE
     Dosage: UNK, MORNING
  8. DAYTRANA [Suspect]
     Active Substance: METHYLPHENIDATE
     Dosage: 15 MG, UNKNOWN
     Route: 062
     Dates: start: 2017
  9. FISH OIL [Concomitant]
     Active Substance: FISH OIL
     Dosage: UNK, MORNING AND EVENING

REACTIONS (10)
  - Drug ineffective [Recovered/Resolved]
  - Abulia [Recovered/Resolved]
  - Application site irritation [Unknown]
  - Intentional underdose [Recovered/Resolved]
  - Fatigue [Recovered/Resolved]
  - Stupor [Not Recovered/Not Resolved]
  - Feeling abnormal [Recovered/Resolved]
  - Drooling [Recovered/Resolved]
  - Wrong technique in product usage process [Recovered/Resolved]
  - Drug effect increased [Recovered/Resolved]

NARRATIVE: CASE EVENT DATE: 2017
